FAERS Safety Report 21604903 (Version 1)
Quarter: 2022Q4

REPORT INFORMATION
  Report Type: Spontaneous
  Country: US (occurrence: US)
  Receive Date: 20221116
  Receipt Date: 20221116
  Transmission Date: 20230112
  Serious: No
  Sender: FDA-Public Use
  Company Number: US-SA-SAC20221114001080

PATIENT
  Sex: Female

DRUGS (4)
  1. DUPIXENT [Suspect]
     Active Substance: DUPILUMAB
     Indication: Dermatitis
     Dosage: 300 MG, QOW
     Route: 058
     Dates: start: 20221026
  2. AMBIEN [Concomitant]
     Active Substance: ZOLPIDEM TARTRATE
  3. HUMULIN R [Concomitant]
     Active Substance: INSULIN HUMAN
  4. LABETALOL [Concomitant]
     Active Substance: LABETALOL\LABETALOL HYDROCHLORIDE

REACTIONS (7)
  - Depression [Unknown]
  - Dermatitis atopic [Not Recovered/Not Resolved]
  - Pruritus [Recovering/Resolving]
  - Sleep disorder [Recovering/Resolving]
  - Skin exfoliation [Recovering/Resolving]
  - Dry skin [Recovering/Resolving]
  - Product use in unapproved indication [Unknown]
